FAERS Safety Report 5266472-8 (Version None)
Quarter: 2007Q1

REPORT INFORMATION
  Report Type: 
  Country: None (occurrence: None)
  Receive Date: 20070315
  Receipt Date: 20070307
  Transmission Date: 20070707
  Serious: Yes (Disabling)
  Sender: FDA-Public Use
  Company Number: GB-BRISTOL-MYERS SQUIBB COMPANY-13714654

PATIENT
  Age: 66 Year
  Sex: Female

DRUGS (13)
  1. CYCLOPHOSPHAMIDE [Suspect]
     Indication: BREAST CANCER
     Route: 042
     Dates: start: 20060524, end: 20060906
  2. FLUOROURACIL [Concomitant]
     Indication: BREAST CANCER
     Route: 042
     Dates: start: 20060526, end: 20060906
  3. EPIRUBICIN [Concomitant]
     Indication: BREAST CANCER
     Route: 042
     Dates: start: 20060524, end: 20060906
  4. BRICANYL [Concomitant]
  5. CYCLIZINE [Concomitant]
     Dates: start: 20060614, end: 20060618
  6. DEXAMETHASONE [Concomitant]
     Indication: ANTIEMETIC SUPPORTIVE CARE
     Dates: start: 20060524, end: 20060906
  7. DOMPERIDONE [Concomitant]
     Route: 048
     Dates: start: 20060524, end: 20060526
  8. LUMIGAN [Concomitant]
  9. METOCLOPRAMIDE [Concomitant]
     Dates: start: 20060705, end: 20060912
  10. PULMICORT [Concomitant]
  11. TRIMETHOPRIM [Concomitant]
  12. TRUSOPT [Concomitant]
  13. SODIUM BICARBONATE [Concomitant]

REACTIONS (3)
  - CYSTITIS [None]
  - DISCOMFORT [None]
  - POLLAKIURIA [None]
